FAERS Safety Report 7827998-3 (Version None)
Quarter: 2011Q4

REPORT INFORMATION
  Report Type: 
  Country: None (occurrence: None)
  Receive Date: 20111020
  Receipt Date: 20111012
  Transmission Date: 20120403
  Serious: Yes (Other)
  Sender: FDA-Public Use
  Company Number: US-GLAXOSMITHKLINE-A0845539A

PATIENT
  Age: 52 Year
  Sex: Female
  Weight: 97.7 kg

DRUGS (5)
  1. GLIPIZIDE [Concomitant]
  2. AVANDIA [Suspect]
     Indication: TYPE 2 DIABETES MELLITUS
     Dosage: 4MG PER DAY
     Route: 048
     Dates: start: 20071015, end: 20090301
  3. METFORMIN HCL [Concomitant]
  4. JANUVIA [Concomitant]
  5. LISINOPRIL [Concomitant]

REACTIONS (4)
  - CARDIAC FAILURE CONGESTIVE [None]
  - IMPAIRED WORK ABILITY [None]
  - CONGESTIVE CARDIOMYOPATHY [None]
  - DYSPNOEA [None]
